FAERS Safety Report 16008313 (Version 4)
Quarter: 2024Q3

REPORT INFORMATION
  Report Type: Spontaneous
  Country: IT (occurrence: IT)
  Receive Date: 20190226
  Receipt Date: 20240816
  Transmission Date: 20241016
  Serious: Yes (Hospitalization, Other)
  Sender: NOVARTIS
  Company Number: PHHY2019IT042328

PATIENT
  Age: 26 Year
  Sex: Female

DRUGS (5)
  1. CYCLOSPORINE [Suspect]
     Active Substance: CYCLOSPORINE
     Indication: Lung transplant
     Dosage: UNK
     Route: 065
  2. TACROLIMUS [Suspect]
     Active Substance: TACROLIMUS
     Indication: Lung transplant
     Dosage: UNK
     Route: 065
  3. TACROLIMUS [Suspect]
     Active Substance: TACROLIMUS
     Dosage: UNK
     Route: 065
     Dates: start: 201704, end: 201707
  4. AZATHIOPRINE [Suspect]
     Active Substance: AZATHIOPRINE
     Indication: Lung transplant
     Dosage: UNK
     Route: 065
     Dates: start: 201704
  5. AZATHIOPRINE [Suspect]
     Active Substance: AZATHIOPRINE
     Dosage: UNK
     Route: 065
     Dates: start: 201704, end: 201707

REACTIONS (8)
  - Epstein-Barr virus associated lymphoproliferative disorder [Recovering/Resolving]
  - Haemoptysis [Recovering/Resolving]
  - Pleural effusion [Recovering/Resolving]
  - Pulmonary mass [Recovering/Resolving]
  - Pyrexia [Recovering/Resolving]
  - Epstein-Barr virus infection [Recovering/Resolving]
  - Acute respiratory distress syndrome [Unknown]
  - Fungal infection [Unknown]

NARRATIVE: CASE EVENT DATE: 20170101
